FAERS Safety Report 9260459 (Version 2)
Quarter: 2013Q2

REPORT INFORMATION
  Report Type: Spontaneous
  Country: US (occurrence: US)
  Receive Date: 20130429
  Receipt Date: 20130531
  Transmission Date: 20140414
  Serious: No
  Sender: FDA-Public Use
  Company Number: US-PFIZER INC-2013130965

PATIENT
  Age: 69 Year
  Sex: Female
  Weight: 81.63 kg

DRUGS (1)
  1. ADVIL [Suspect]
     Indication: BACK PAIN
     Dosage: UNK, AS NEEDED

REACTIONS (3)
  - Poor quality drug administered [Unknown]
  - Pain in extremity [Unknown]
  - Tablet physical issue [Unknown]
